FAERS Safety Report 6199600-0 (Version None)
Quarter: 2009Q2

REPORT INFORMATION
  Report Type: 
  Country: None (occurrence: None)
  Receive Date: 20090522
  Receipt Date: 20090521
  Transmission Date: 20091009
  Serious: Yes (Hospitalization)
  Sender: FDA-Public Use
  Company Number: Z0000843A

PATIENT
  Age: 60 Year
  Sex: Female
  Weight: 91.8 kg

DRUGS (2)
  1. LAPATINIB [Suspect]
     Dosage: 1250MG PER DAY
     Route: 048
     Dates: start: 20090224
  2. NAB-PACLITAXEL [Suspect]
     Dosage: 100MGM2 CYCLIC
     Route: 042
     Dates: start: 20090224

REACTIONS (2)
  - ANAEMIA [None]
  - PNEUMONIA [None]
